FAERS Safety Report 14434270 (Version 1)
Quarter: 2018Q1

REPORT INFORMATION
  Report Type: Spontaneous
  Country: US (occurrence: US)
  Receive Date: 20180124
  Receipt Date: 20180124
  Transmission Date: 20180509
  Serious: Yes (Other)
  Sender: FDA-Public Use
  Company Number: US-FRESENIUS KABI-FK201800705

PATIENT
  Age: 10 Year
  Sex: Female

DRUGS (1)
  1. GLUCOSE (MANUFACTURER UNKNOWN) [Suspect]
     Active Substance: DEXTROSE
     Indication: VULVAL ABSCESS
     Route: 065

REACTIONS (1)
  - Diabetic ketoacidosis [Unknown]
